FAERS Safety Report 7099769-X (Version None)
Quarter: 2010Q4

REPORT INFORMATION
  Report Type: 
  Country: None (occurrence: None)
  Receive Date: 20101112
  Receipt Date: 20101108
  Transmission Date: 20110411
  Serious: Yes (Hospitalization, Other)
  Sender: FDA-Public Use
  Company Number: US-RB-000583-10

PATIENT
  Age: 62 Year
  Sex: Male

DRUGS (3)
  1. SUBOXONE [Suspect]
     Route: 060
     Dates: start: 20090901, end: 20100104
  2. SUBOXONE [Suspect]
     Indication: DRUG DEPENDENCE
     Route: 060
     Dates: start: 20100105, end: 20100101
  3. SUBUTEX [Suspect]
     Indication: DRUG DEPENDENCE
     Dosage: DOSING DETAILS UNKNOWN
     Route: 065
     Dates: start: 20100101

REACTIONS (7)
  - DEPRESSION [None]
  - HYPERHIDROSIS [None]
  - INFECTION [None]
  - NIGHTMARE [None]
  - OVERDOSE [None]
  - PNEUMONIA [None]
  - SUICIDAL IDEATION [None]
